FAERS Safety Report 19603582 (Version 2)
Quarter: 2021Q4

REPORT INFORMATION
  Report Type: Spontaneous
  Country: CA (occurrence: CA)
  Receive Date: 20210724
  Receipt Date: 20211227
  Transmission Date: 20220303
  Serious: Yes (Life-Threatening, Hospitalization, Other)
  Sender: FDA-Public Use
  Company Number: CA-MLMSERVICE-20210708-2988536-1

PATIENT
  Age: 55 Year
  Sex: Female

DRUGS (3)
  1. MYCOPHENOLATE MOFETIL [Suspect]
     Active Substance: MYCOPHENOLATE MOFETIL
     Indication: Immunosuppressant drug therapy
  2. PREDNISONE [Suspect]
     Active Substance: PREDNISONE
     Indication: Immunosuppressant drug therapy
  3. CYCLOSPORINE [Suspect]
     Active Substance: CYCLOSPORINE
     Indication: Immunosuppressant drug therapy

REACTIONS (11)
  - Cryptococcosis [Unknown]
  - Cytomegalovirus infection [Unknown]
  - Diarrhoea [Unknown]
  - Myoclonus [Recovering/Resolving]
  - Pneumonia [Unknown]
  - Depressed level of consciousness [Recovering/Resolving]
  - Disseminated cryptococcosis [Unknown]
  - Vasogenic cerebral oedema [Recovering/Resolving]
  - Meningism [Recovering/Resolving]
  - Acute respiratory failure [Unknown]
  - Meningitis cryptococcal [Recovering/Resolving]
